FAERS Safety Report 14280006 (Version 3)
Quarter: 2018Q3

REPORT INFORMATION
  Report Type: Spontaneous
  Country: US (occurrence: US)
  Receive Date: 20171213
  Receipt Date: 20180925
  Transmission Date: 20181010
  Serious: No
  Sender: FDA-Public Use
  Company Number: US-TAKEDA-2017MPI010953

PATIENT
  Sex: Female
  Weight: 69.07 kg

DRUGS (2)
  1. NINLARO [Suspect]
     Active Substance: IXAZOMIB CITRATE
     Dosage: 4 MG, 1/WEEK
     Route: 048
     Dates: start: 20180919
  2. NINLARO [Suspect]
     Active Substance: IXAZOMIB CITRATE
     Indication: PLASMA CELL MYELOMA
     Dosage: 4 MG, UNK
     Route: 048
     Dates: start: 201710

REACTIONS (4)
  - Influenza [Unknown]
  - Skin burning sensation [Unknown]
  - Breath odour [Unknown]
  - Rash [Unknown]
